FAERS Safety Report 14824016 (Version 9)
Quarter: 2019Q2

REPORT INFORMATION
  Report Type: Report from Study
  Country: None (occurrence: BE)
  Receive Date: 20180428
  Receipt Date: 20190624
  Transmission Date: 20190711
  Serious: Yes (Hospitalization)
  Sender: FDA-Public Use
  Company Number: BE-ABBVIE-18K-013-2338211-00

PATIENT
  Sex: Female

DRUGS (7)
  1. DUODOPA [Suspect]
     Active Substance: CARBIDOPA\LEVODOPA
     Dosage: MD=6ML??CD=2.4ML/HR DURING 16HRS ??ED=4ML
     Route: 050
     Dates: start: 20080204, end: 20110211
  2. DUODOPA [Suspect]
     Active Substance: CARBIDOPA\LEVODOPA
     Dosage: MD=6ML CD=3.6ML/HR DURING 16HRS ED=2.3ML
     Route: 050
     Dates: start: 20170704
  3. DUODOPA [Suspect]
     Active Substance: CARBIDOPA\LEVODOPA
     Dosage: DOSES CONTINUOUSLY MONITORED AND ADAPTED
     Route: 050
     Dates: start: 20110211, end: 20170704
  4. STALEVO 100 [Concomitant]
     Indication: PARKINSON^S DISEASE
     Dosage: FORM STRENGTH: 100MG/25MG/200MG
     Route: 048
  5. DUODOPA [Suspect]
     Active Substance: CARBIDOPA\LEVODOPA
     Indication: PARKINSON^S DISEASE
     Route: 050
     Dates: start: 20080128, end: 20080204
  6. DUODOPA [Suspect]
     Active Substance: CARBIDOPA\LEVODOPA
     Dosage: MD=6ML CD=3.9ML/HR DURING 16HRS ED=2.3ML
     Route: 050
  7. STALEVO 100 [Concomitant]
     Dosage: FORM STRENGTH: 100MG/25MG/200MG?4 TIME/DAY AS RESCUE MEDICATION

REACTIONS (11)
  - Hypophagia [Not Recovered/Not Resolved]
  - Off label use [Unknown]
  - Staphylococcal infection [Unknown]
  - Device connection issue [Recovered/Resolved]
  - Unevaluable event [Unknown]
  - Device issue [Unknown]
  - Unintentional medical device removal [Recovered/Resolved]
  - General physical health deterioration [Not Recovered/Not Resolved]
  - Wheelchair user [Not Recovered/Not Resolved]
  - Cognitive disorder [Recovering/Resolving]
  - Urinary tract infection [Unknown]
